FAERS Safety Report 13287795 (Version 1)
Quarter: 2017Q1

REPORT INFORMATION
  Report Type: Spontaneous
  Country: BR (occurrence: BR)
  Receive Date: 20170302
  Receipt Date: 20170302
  Transmission Date: 20170428
  Serious: Yes (Hospitalization, Other)
  Sender: FDA-Public Use
  Company Number: BR-SHIRE-BR201704547

PATIENT
  Age: 68 Year
  Sex: Male

DRUGS (3)
  1. DIUREX                             /00022001/ [Concomitant]
     Indication: HYPERTENSION
     Dosage: 100 MG, 1X/DAY:QD (2 - 50 MG DOSAGE FORM A DAY)
     Route: 065
     Dates: start: 2012
  2. MESACOL MMX [Suspect]
     Active Substance: MESALAMINE
     Indication: DIARRHOEA
     Dosage: 2400 MG, 1X/DAY:QD (2 - 1200 MG )
     Route: 048
     Dates: start: 2016
  3. ATENOLOL. [Concomitant]
     Active Substance: ATENOLOL
     Indication: HYPERTENSION
     Dosage: 100 MG, 1X/DAY:QD  (2 - 50 MG A DAY)
     Route: 065
     Dates: start: 2012

REACTIONS (3)
  - Nephritis [Unknown]
  - Product use issue [Not Recovered/Not Resolved]
  - Productive cough [Unknown]

NARRATIVE: CASE EVENT DATE: 2016
